FAERS Safety Report 6866930-6 (Version None)
Quarter: 2010Q3

REPORT INFORMATION
  Report Type: 
  Country: None (occurrence: None)
  Receive Date: 20100722
  Receipt Date: 20100722
  Transmission Date: 20110219
  Serious: Yes (Life-Threatening)
  Sender: FDA-Public Use
  Company Number: None

PATIENT
  Age: 43 Year
  Sex: Female
  Weight: 59.8748 kg

DRUGS (3)
  1. METHIMAZOLE [Suspect]
     Indication: BASEDOW'S DISEASE
     Dosage: 5 MG 2 TIMES DAILY PILL
     Dates: start: 20090919, end: 20091003
  2. DROSPIRENONE AND EHTINYL ESTRADIOL [Concomitant]
  3. ATENOLOL [Concomitant]

REACTIONS (1)
  - JAUNDICE CHOLESTATIC [None]
